FAERS Safety Report 4495458-6 (Version None)
Quarter: 2004Q4

REPORT INFORMATION
  Report Type: 
  Country: None (occurrence: None)
  Receive Date: 20041108
  Receipt Date: 20031010
  Transmission Date: 20050328
  Serious: Yes (Other)
  Sender: FDA-Public Use
  Company Number: 200318967US

PATIENT
  Sex: Female
  Weight: 68.2 kg

DRUGS (2)
  1. ANZEMET [Suspect]
     Dates: start: 20030606, end: 20030606
  2. SARAFEM [Concomitant]

REACTIONS (10)
  - DEVICE FAILURE [None]
  - FALL [None]
  - GRIP STRENGTH DECREASED [None]
  - INFLAMMATION [None]
  - LOSS OF CONSCIOUSNESS [None]
  - MOVEMENT DISORDER [None]
  - PAIN [None]
  - SENSORY LOSS [None]
  - SKIN LACERATION [None]
  - TENDON INJURY [None]
